FAERS Safety Report 20060574 (Version 1)
Quarter: 2021Q4

REPORT INFORMATION
  Report Type: Other
  Country: ID (occurrence: None)
  Receive Date: 20211112
  Receipt Date: 20211112
  Transmission Date: 20220303
  Serious: Yes (Death, Hospitalization, Other)
  Sender: FDA-Public Use
  Company Number: ID-ROCHE-2950206

PATIENT
  Sex: Female

DRUGS (1)
  1. HERCEPTIN [Suspect]
     Active Substance: TRASTUZUMAB
     Indication: Breast cancer metastatic
     Route: 058

REACTIONS (9)
  - Death [Fatal]
  - Gait inability [Unknown]
  - Peripheral swelling [Unknown]
  - Depressed level of consciousness [Unknown]
  - Platelet count decreased [Unknown]
  - Haemoglobin decreased [Unknown]
  - Condition aggravated [Unknown]
  - Asthenia [Unknown]
  - Drug ineffective [Unknown]
